FAERS Safety Report 6143827-0 (Version None)
Quarter: 2009Q2

REPORT INFORMATION
  Report Type: 
  Country: None (occurrence: None)
  Receive Date: 20090403
  Receipt Date: 20090331
  Transmission Date: 20091009
  Serious: Yes (Life-Threatening, Hospitalization)
  Sender: FDA-Public Use
  Company Number: PHHY2009JP06798

PATIENT
  Sex: Female

DRUGS (10)
  1. DIOVAN [Suspect]
     Indication: HYPERTENSION
     Dosage: 80 MG DAILY
     Route: 048
     Dates: start: 20090115, end: 20090213
  2. WARFARIN SODIUM [Suspect]
     Indication: ANTICOAGULANT THERAPY
     Dosage: 2 MG DAILY
     Dates: start: 20090115, end: 20090213
  3. LASIX [Suspect]
     Indication: CARDIAC FAILURE
     Dosage: 40 MG
     Route: 048
     Dates: start: 20090115, end: 20090126
  4. LASIX [Suspect]
     Dosage: 20 MG
     Route: 048
     Dates: start: 20090127, end: 20090213
  5. ALDACTONE [Suspect]
     Indication: CARDIAC FAILURE
     Dosage: 50 MG
     Route: 048
     Dates: start: 20090115, end: 20090126
  6. ALDACTONE [Suspect]
     Dosage: 25 MG
     Route: 048
     Dates: start: 20090127, end: 20090213
  7. ARTIST [Suspect]
     Indication: HYPERTENSION
     Dosage: 5 MG
     Route: 048
     Dates: start: 20090203, end: 20090213
  8. TAKEPRON [Suspect]
     Indication: GASTRIC ULCER
     Dosage: 15 MG
     Dates: start: 20090115, end: 20090213
  9. ALEVIATIN [Suspect]
     Indication: EPILEPSY
     Dosage: 200 MG
     Route: 048
     Dates: start: 20090115, end: 20090126
  10. EXCEGRAN [Suspect]
     Dosage: 200 MG
     Route: 048
     Dates: start: 20090127, end: 20090213

REACTIONS (3)
  - AGRANULOCYTOSIS [None]
  - NEUTROPHIL COUNT DECREASED [None]
  - PYREXIA [None]
